FAERS Safety Report 5944506-2 (Version None)
Quarter: 2008Q4

REPORT INFORMATION
  Report Type: 
  Country: None (occurrence: None)
  Receive Date: 20081107
  Receipt Date: 20081028
  Transmission Date: 20090506
  Serious: Yes (Death, Hospitalization)
  Sender: FDA-Public Use
  Company Number: PH-BAXTER-2008BH011575

PATIENT
  Age: 72 Year
  Sex: Male

DRUGS (3)
  1. DIANEAL [Suspect]
     Indication: RENAL DISORDER
     Dosage: DOSE UNIT:UNKNOWN
     Route: 033
     Dates: start: 20080110
  2. NORVASC [Concomitant]
     Indication: DRUG USE FOR UNKNOWN INDICATION
     Dosage: DOSE UNIT:UNKNOWN
     Route: 065
  3. EPREX                                   /UNK/ [Concomitant]
     Indication: DRUG USE FOR UNKNOWN INDICATION
     Dosage: DOSE UNIT:UNKNOWN
     Route: 065

REACTIONS (1)
  - PNEUMONIA [None]
